FAERS Safety Report 9759886 (Version 2)
Quarter: 2013Q4

REPORT INFORMATION
  Report Type: Spontaneous
  Country: DE (occurrence: DE)
  Receive Date: 20131216
  Receipt Date: 20131226
  Transmission Date: 20140711
  Serious: Yes (Death)
  Sender: FDA-Public Use
  Company Number: DE-CELGENEUS-062-21880-13120700

PATIENT
  Age: 82 Year
  Sex: Male
  Weight: 90 kg

DRUGS (10)
  1. REVLIMID [Suspect]
     Indication: PLASMA CELL MYELOMA
     Dosage: 25 MILLIGRAM
     Route: 048
     Dates: start: 20131113
  2. BENDAMUSTINE [Suspect]
     Indication: PLASMA CELL MYELOMA
     Dosage: 150 MILLIGRAM
     Route: 041
     Dates: start: 20131113, end: 20131114
  3. DEXAMETHASONE [Suspect]
     Indication: PLASMA CELL MYELOMA
     Dosage: 20 MILLIGRAM
     Route: 048
     Dates: start: 20131113
  4. PEGFILGRASTIM [Suspect]
     Indication: PLASMA CELL MYELOMA
     Dosage: 6 MILLIGRAM
     Route: 058
     Dates: start: 20131115, end: 20131115
  5. BISOPROLOL [Concomitant]
     Indication: HYPERTENSION
     Dosage: 5 MILLIGRAM
     Route: 048
     Dates: start: 20080915
  6. ACETYLSALICYLIC ACID [Concomitant]
     Indication: CARDIAC FAILURE
     Dosage: 100 DOSAGE FORMS
     Route: 048
  7. PANTOPRAZOLE [Concomitant]
     Indication: PROPHYLAXIS
     Dosage: 20 MILLIGRAM
     Route: 048
     Dates: start: 2011
  8. PRAVASTATIN [Concomitant]
     Indication: CORONARY ARTERY DISEASE
     Dosage: 20 MILLIGRAM
     Route: 048
     Dates: start: 2002
  9. ALLOPURINOL [Concomitant]
     Indication: HYPERURICAEMIA
     Dosage: 20 MILLIGRAM
     Route: 048
  10. TAMSULOSIN [Concomitant]
     Indication: PROSTATIC DISORDER
     Dosage: 4 MILLIGRAM
     Route: 048
     Dates: start: 201204

REACTIONS (1)
  - Respiratory failure [Fatal]
